FAERS Safety Report 17160402 (Version 1)
Quarter: 2019Q4

REPORT INFORMATION
  Report Type: Spontaneous
  Country: US (occurrence: US)
  Receive Date: 20191216
  Receipt Date: 20191216
  Transmission Date: 20200122
  Serious: No
  Sender: FDA-Public Use
  Company Number: US-OCULAR THERAPEUTIX-2019OCX00023

PATIENT
  Age: 67 Year
  Sex: Male

DRUGS (3)
  1. DEXTENZA [Suspect]
     Active Substance: DEXAMETHASONE
     Indication: CATARACT OPERATION
     Dosage: 0.4 MG, ONCE
     Route: 047
     Dates: start: 20190801, end: 20190801
  2. MOXIFLOXACIN. [Concomitant]
     Active Substance: MOXIFLOXACIN
     Dosage: UNK, 3X/DAY
     Route: 047
  3. ILEVRO [Concomitant]
     Active Substance: NEPAFENAC
     Dosage: UNK, 1X/DAY
     Route: 047

REACTIONS (3)
  - Anterior chamber cell [Not Recovered/Not Resolved]
  - Eye inflammation [Not Recovered/Not Resolved]
  - Corneal disorder [Not Recovered/Not Resolved]

NARRATIVE: CASE EVENT DATE: 20190830
